FAERS Safety Report 7084102-X (Version None)
Quarter: 2010Q4

REPORT INFORMATION
  Report Type: 
  Country: None (occurrence: None)
  Receive Date: 20101104
  Receipt Date: 20100922
  Transmission Date: 20110411
  Serious: Yes (Hospitalization, Other)
  Sender: FDA-Public Use
  Company Number: US-BAXTER-2010BH000503

PATIENT
  Age: 60 Year
  Sex: Male
  Weight: 124 kg

DRUGS (98)
  1. HEPARIN SODIUM INJECTION [Suspect]
     Indication: HAEMODIALYSIS
     Route: 042
     Dates: start: 20071230, end: 20071230
  2. HEPARIN SODIUM INJECTION [Suspect]
     Indication: THROMBOSIS PROPHYLAXIS
     Route: 042
     Dates: start: 20071230, end: 20071230
  3. HEPARIN SODIUM INJECTION [Suspect]
     Indication: DEEP VEIN THROMBOSIS
     Route: 042
     Dates: start: 20071230, end: 20071230
  4. HEPARIN SODIUM INJECTION [Suspect]
     Indication: THROMBECTOMY
     Route: 042
     Dates: start: 20071230, end: 20071230
  5. HEPARIN SODIUM INJECTION [Suspect]
     Indication: INTRAVENOUS CATHETER MANAGEMENT
     Route: 042
     Dates: start: 20071230, end: 20071230
  6. HEPARIN SODIUM INJECTION [Suspect]
     Route: 042
     Dates: start: 20080110, end: 20080217
  7. HEPARIN SODIUM INJECTION [Suspect]
     Route: 042
     Dates: start: 20080110, end: 20080217
  8. HEPARIN SODIUM INJECTION [Suspect]
     Route: 042
     Dates: start: 20080110, end: 20080217
  9. HEPARIN SODIUM INJECTION [Suspect]
     Route: 042
     Dates: start: 20080110, end: 20080217
  10. HEPARIN SODIUM INJECTION [Suspect]
     Route: 042
     Dates: start: 20080110, end: 20080217
  11. HEPARIN SODIUM INJECTION [Suspect]
     Route: 042
     Dates: start: 20080111, end: 20080111
  12. HEPARIN SODIUM INJECTION [Suspect]
     Route: 042
     Dates: start: 20080111, end: 20080111
  13. HEPARIN SODIUM INJECTION [Suspect]
     Route: 042
     Dates: start: 20080111, end: 20080111
  14. HEPARIN SODIUM INJECTION [Suspect]
     Route: 042
     Dates: start: 20080111, end: 20080111
  15. HEPARIN SODIUM INJECTION [Suspect]
     Route: 042
     Dates: start: 20080111, end: 20080111
  16. HEPARIN SODIUM INJECTION [Suspect]
     Route: 042
     Dates: start: 20080110, end: 20080123
  17. HEPARIN SODIUM INJECTION [Suspect]
     Route: 042
     Dates: start: 20080110, end: 20080123
  18. HEPARIN SODIUM INJECTION [Suspect]
     Route: 042
     Dates: start: 20080110, end: 20080123
  19. HEPARIN SODIUM INJECTION [Suspect]
     Route: 042
     Dates: start: 20080110, end: 20080123
  20. HEPARIN SODIUM INJECTION [Suspect]
     Route: 042
     Dates: start: 20080110, end: 20080123
  21. HEPARIN SODIUM INJECTION [Suspect]
     Route: 042
     Dates: start: 20080208, end: 20080523
  22. HEPARIN SODIUM INJECTION [Suspect]
     Route: 042
     Dates: start: 20080208, end: 20080523
  23. HEPARIN SODIUM INJECTION [Suspect]
     Route: 042
     Dates: start: 20080208, end: 20080523
  24. HEPARIN SODIUM INJECTION [Suspect]
     Route: 042
     Dates: start: 20080208, end: 20080523
  25. HEPARIN SODIUM INJECTION [Suspect]
     Route: 042
     Dates: start: 20080208, end: 20080523
  26. HEPARIN SODIUM INJECTION [Suspect]
     Route: 065
     Dates: start: 20080114, end: 20080114
  27. HEPARIN SODIUM INJECTION [Suspect]
     Route: 065
     Dates: start: 20080114, end: 20080114
  28. HEPARIN SODIUM INJECTION [Suspect]
     Route: 065
     Dates: start: 20080114, end: 20080114
  29. HEPARIN SODIUM INJECTION [Suspect]
     Route: 065
     Dates: start: 20080114, end: 20080114
  30. HEPARIN SODIUM INJECTION [Suspect]
     Route: 065
     Dates: start: 20080114, end: 20080114
  31. HEPARIN SODIUM INJECTION [Suspect]
     Route: 042
     Dates: start: 20080203, end: 20080218
  32. HEPARIN SODIUM INJECTION [Suspect]
     Route: 042
     Dates: start: 20080203, end: 20080218
  33. HEPARIN SODIUM INJECTION [Suspect]
     Route: 042
     Dates: start: 20080203, end: 20080218
  34. HEPARIN SODIUM INJECTION [Suspect]
     Route: 042
     Dates: start: 20080203, end: 20080218
  35. HEPARIN SODIUM INJECTION [Suspect]
     Route: 042
     Dates: start: 20080203, end: 20080218
  36. HEPARIN SODIUM INJECTION [Suspect]
     Route: 042
     Dates: start: 20080119, end: 20080119
  37. HEPARIN SODIUM INJECTION [Suspect]
     Route: 042
     Dates: start: 20080119, end: 20080119
  38. HEPARIN SODIUM INJECTION [Suspect]
     Route: 042
     Dates: start: 20080119, end: 20080119
  39. HEPARIN SODIUM INJECTION [Suspect]
     Route: 042
     Dates: start: 20080119, end: 20080119
  40. HEPARIN SODIUM INJECTION [Suspect]
     Route: 042
     Dates: start: 20080119, end: 20080119
  41. HEPARIN SODIUM INJECTION [Suspect]
     Route: 042
     Dates: start: 20080125, end: 20080125
  42. HEPARIN SODIUM INJECTION [Suspect]
     Route: 042
     Dates: start: 20080125, end: 20080125
  43. HEPARIN SODIUM INJECTION [Suspect]
     Route: 042
     Dates: start: 20080125, end: 20080125
  44. HEPARIN SODIUM INJECTION [Suspect]
     Route: 042
     Dates: start: 20080125, end: 20080125
  45. HEPARIN SODIUM INJECTION [Suspect]
     Route: 042
     Dates: start: 20080125, end: 20080125
  46. HEPARIN SODIUM INJECTION [Suspect]
     Route: 042
     Dates: start: 20080128, end: 20080128
  47. HEPARIN SODIUM INJECTION [Suspect]
     Route: 042
     Dates: start: 20080128, end: 20080128
  48. HEPARIN SODIUM INJECTION [Suspect]
     Route: 042
     Dates: start: 20080128, end: 20080128
  49. HEPARIN SODIUM INJECTION [Suspect]
     Route: 042
     Dates: start: 20080128, end: 20080128
  50. HEPARIN SODIUM INJECTION [Suspect]
     Route: 042
     Dates: start: 20080128, end: 20080128
  51. HEPARIN SODIUM INJECTION [Suspect]
     Route: 042
     Dates: start: 20080120, end: 20080120
  52. HEPARIN SODIUM INJECTION [Suspect]
     Route: 042
     Dates: start: 20080120, end: 20080120
  53. HEPARIN SODIUM INJECTION [Suspect]
     Route: 042
     Dates: start: 20080120, end: 20080120
  54. HEPARIN SODIUM INJECTION [Suspect]
     Route: 042
     Dates: start: 20080120, end: 20080120
  55. HEPARIN SODIUM INJECTION [Suspect]
     Route: 042
     Dates: start: 20080120, end: 20080120
  56. HEPARIN SODIUM INJECTION [Suspect]
     Route: 040
     Dates: start: 20080110, end: 20080110
  57. HEPARIN SODIUM INJECTION [Suspect]
     Route: 040
     Dates: start: 20080110, end: 20080110
  58. HEPARIN SODIUM INJECTION [Suspect]
     Route: 040
     Dates: start: 20080110, end: 20080110
  59. HEPARIN SODIUM INJECTION [Suspect]
     Route: 040
     Dates: start: 20080110, end: 20080110
  60. HEPARIN SODIUM INJECTION [Suspect]
     Route: 040
     Dates: start: 20080110, end: 20080110
  61. HEPARIN SODIUM INJECTION [Suspect]
     Route: 042
     Dates: start: 20080218, end: 20080430
  62. HEPARIN SODIUM INJECTION [Suspect]
     Route: 042
     Dates: start: 20080218, end: 20080430
  63. HEPARIN SODIUM INJECTION [Suspect]
     Route: 042
     Dates: start: 20080218, end: 20080430
  64. HEPARIN SODIUM INJECTION [Suspect]
     Route: 042
     Dates: start: 20080218, end: 20080430
  65. HEPARIN SODIUM INJECTION [Suspect]
     Route: 042
     Dates: start: 20080218, end: 20080430
  66. HEPARIN SODIUM INJECTION [Suspect]
     Route: 042
     Dates: start: 20080203, end: 20080218
  67. HEPARIN SODIUM INJECTION [Suspect]
     Route: 042
     Dates: start: 20080203, end: 20080218
  68. HEPARIN SODIUM INJECTION [Suspect]
     Route: 042
     Dates: start: 20080203, end: 20080218
  69. HEPARIN SODIUM INJECTION [Suspect]
     Route: 042
     Dates: start: 20080203, end: 20080218
  70. HEPARIN SODIUM INJECTION [Suspect]
     Route: 042
     Dates: start: 20080203, end: 20080218
  71. HEPARIN SODIUM 1,000 UNITS AND SODIUM CHLORIDE 0.9% [Suspect]
     Indication: DIALYSIS DEVICE INSERTION
     Route: 042
     Dates: start: 20080118, end: 20080118
  72. HEPARIN SODIUM 1,000 UNITS AND SODIUM CHLORIDE 0.9% [Suspect]
     Indication: DEEP VEIN THROMBOSIS
     Route: 042
     Dates: start: 20080118, end: 20080118
  73. HEPARIN SODIUM 1,000 UNITS AND SODIUM CHLORIDE 0.9% [Suspect]
     Route: 042
     Dates: start: 20080110, end: 20080110
  74. HEPARIN SODIUM 1,000 UNITS AND SODIUM CHLORIDE 0.9% [Suspect]
     Route: 042
     Dates: start: 20080110, end: 20080110
  75. HEPARIN SODIUM 1,000 UNITS AND SODIUM CHLORIDE 0.9% [Suspect]
     Route: 042
     Dates: start: 20080121, end: 20080121
  76. HEPARIN SODIUM 1,000 UNITS AND SODIUM CHLORIDE 0.9% [Suspect]
     Route: 042
     Dates: start: 20080121, end: 20080121
  77. HEPARIN SODIUM 1,000 UNITS AND SODIUM CHLORIDE 0.9% [Suspect]
     Route: 042
     Dates: start: 20080125, end: 20080125
  78. HEPARIN SODIUM 1,000 UNITS AND SODIUM CHLORIDE 0.9% [Suspect]
     Route: 042
     Dates: start: 20080125, end: 20080125
  79. HEPARIN SODIUM 1,000 UNITS AND SODIUM CHLORIDE 0.9% [Suspect]
     Route: 042
     Dates: start: 20080128, end: 20080128
  80. HEPARIN SODIUM 1,000 UNITS AND SODIUM CHLORIDE 0.9% [Suspect]
     Route: 042
     Dates: start: 20080128, end: 20080128
  81. HEPARIN SODIUM 5,000 UNITS IN DEXTROSE 5% [Suspect]
     Indication: DEEP VEIN THROMBOSIS
     Route: 042
     Dates: start: 20071230, end: 20080217
  82. HEPARIN SODIUM 5,000 UNITS IN DEXTROSE 5% [Suspect]
     Route: 042
     Dates: start: 20080110, end: 20080114
  83. HEPARIN SODIUM 5,000 UNITS IN DEXTROSE 5% [Suspect]
     Route: 042
     Dates: start: 20080115, end: 20080123
  84. WARFARIN SODIUM [Suspect]
     Indication: ANTICOAGULANT THERAPY
     Route: 048
     Dates: start: 20080113, end: 20080114
  85. WARFARIN SODIUM [Suspect]
     Route: 048
     Dates: start: 20080115, end: 20080128
  86. ASPIRIN [Concomitant]
     Indication: PRODUCT USED FOR UNKNOWN INDICATION
     Route: 065
  87. PRIMATENE MIST [Concomitant]
     Indication: PRODUCT USED FOR UNKNOWN INDICATION
     Route: 065
  88. GARLIC [Concomitant]
     Indication: PRODUCT USED FOR UNKNOWN INDICATION
     Route: 065
  89. METOPROLOL SUCCINATE [Concomitant]
     Indication: PRODUCT USED FOR UNKNOWN INDICATION
     Route: 065
  90. DOCUSATE SODIUM [Concomitant]
     Indication: PRODUCT USED FOR UNKNOWN INDICATION
     Route: 065
  91. FUROSEMIDE [Concomitant]
     Indication: PRODUCT USED FOR UNKNOWN INDICATION
     Route: 065
  92. DOPAMINE HCL IN 5% DEXTROSE [Concomitant]
     Indication: PRODUCT USED FOR UNKNOWN INDICATION
     Route: 065
  93. ONDANSETRON [Concomitant]
     Indication: PRODUCT USED FOR UNKNOWN INDICATION
     Route: 065
  94. LEVOFLOXACIN [Concomitant]
     Indication: PRODUCT USED FOR UNKNOWN INDICATION
     Route: 065
  95. ACETAMINOPHEN [Concomitant]
     Indication: PRODUCT USED FOR UNKNOWN INDICATION
     Route: 065
  96. ENOXAPARIN SODIUM [Concomitant]
     Indication: PRODUCT USED FOR UNKNOWN INDICATION
     Route: 065
  97. IPRATROPIUM BROMIDE [Concomitant]
     Indication: PRODUCT USED FOR UNKNOWN INDICATION
     Route: 065
  98. LIDOCAINE HYDROCHLORIDE [Concomitant]
     Indication: PRODUCT USED FOR UNKNOWN INDICATION
     Route: 065

REACTIONS (33)
  - ABDOMINAL DISTENSION [None]
  - ANAEMIA [None]
  - ASTHENIA [None]
  - BRONCHITIS [None]
  - BURNING SENSATION [None]
  - CARDIAC FAILURE [None]
  - CARDIOGENIC SHOCK [None]
  - CHEST PAIN [None]
  - DEEP VEIN THROMBOSIS [None]
  - DEPRESSION [None]
  - DIZZINESS [None]
  - FATIGUE [None]
  - FLUID OVERLOAD [None]
  - HYPERBILIRUBINAEMIA [None]
  - HYPERHIDROSIS [None]
  - HYPERPHOSPHATAEMIA [None]
  - HYPONATRAEMIA [None]
  - INSOMNIA [None]
  - JUGULAR VEIN THROMBOSIS [None]
  - LEUKOCYTOSIS [None]
  - LOWER GASTROINTESTINAL HAEMORRHAGE [None]
  - NAUSEA [None]
  - PSEUDOMONAL BACTERAEMIA [None]
  - PULMONARY OEDEMA [None]
  - PYREXIA [None]
  - RENAL FAILURE ACUTE [None]
  - RENAL PAIN [None]
  - RESPIRATORY FAILURE [None]
  - TACHYCARDIA [None]
  - THROMBOCYTOSIS [None]
  - URINARY TRACT INFECTION PSEUDOMONAL [None]
  - VISION BLURRED [None]
  - VOMITING [None]
